FAERS Safety Report 20796555 (Version 1)
Quarter: 2022Q2

REPORT INFORMATION
  Report Type: Spontaneous
  Country: US (occurrence: None)
  Receive Date: 20220506
  Receipt Date: 20220506
  Transmission Date: 20220721
  Serious: No
  Sender: FDA-Public Use
  Company Number: None

PATIENT
  Age: 59 Year
  Sex: Female
  Weight: 67.5 kg

DRUGS (6)
  1. ENSPRYNG [Suspect]
     Active Substance: SATRALIZUMAB-MWGE
     Indication: Neuromyelitis optica spectrum disorder
     Dosage: OTHER FREQUENCY : MONTHLY;?
     Route: 058
     Dates: start: 20210917, end: 20211203
  2. ACTEMRA [Concomitant]
     Active Substance: TOCILIZUMAB
     Dates: start: 20200103, end: 20210910
  3. ACTEMRA [Concomitant]
     Active Substance: TOCILIZUMAB
  4. CLONAZEPAM [Concomitant]
     Active Substance: CLONAZEPAM
     Dates: start: 20171129
  5. GABAPENTIN [Concomitant]
     Active Substance: GABAPENTIN
     Dates: start: 20171108
  6. TIZANIDINE [Concomitant]
     Active Substance: TIZANIDINE
     Dates: start: 20171108

REACTIONS (2)
  - Paraesthesia [None]
  - Neuropathy peripheral [None]

NARRATIVE: CASE EVENT DATE: 20211117
